FAERS Safety Report 23813253 (Version 1)
Quarter: 2024Q2

REPORT INFORMATION
  Report Type: Report from Study
  Country: CA (occurrence: CA)
  Receive Date: 20240503
  Receipt Date: 20240503
  Transmission Date: 20240715
  Serious: Yes (Death)
  Sender: FDA-Public Use
  Company Number: CA-CHIESI-2024CHF02468

PATIENT
  Age: 95 Year
  Sex: Female
  Weight: 49.8 kg

DRUGS (1)
  1. DEFERIPRONE [Suspect]
     Active Substance: DEFERIPRONE
     Indication: Iron overload
     Dosage: 2500 MILLIGRAM, BID
     Route: 048
     Dates: start: 20240118, end: 20240427

REACTIONS (4)
  - Death [Fatal]
  - Prescribed overdose [Fatal]
  - Off label use [Unknown]
  - Off label use [Unknown]

NARRATIVE: CASE EVENT DATE: 20240427
